FAERS Safety Report 5414960-3 (Version None)
Quarter: 2007Q3

REPORT INFORMATION
  Report Type: 
  Country: None (occurrence: None)
  Receive Date: 20070815
  Receipt Date: 20070806
  Transmission Date: 20080115
  Serious: Yes (Death, Life-Threatening, Disabling)
  Sender: FDA-Public Use
  Company Number: JP-JNJFOC-20070602406

PATIENT
  Sex: Male
  Weight: 37 kg

DRUGS (8)
  1. ITRACONAZOLE [Suspect]
     Route: 041
  2. ITRACONAZOLE [Suspect]
     Indication: BRONCHOPULMONARY ASPERGILLOSIS
     Dosage: 200-400 MG
     Route: 041
  3. FAMOTIDINE [Concomitant]
     Indication: NAUSEA
     Route: 048
  4. SELBEX [Concomitant]
     Indication: NAUSEA
     Route: 048
  5. FERROUS CITRATE [Concomitant]
     Indication: ANAEMIA
     Route: 048
  6. POTASSIUM GLUCONATE TAB [Concomitant]
     Indication: HYPOKALAEMIA
     Route: 048
  7. SOLDEM 1 [Concomitant]
     Indication: HYPONATRAEMIA
     Route: 041
  8. PRIMPERAN INJ [Concomitant]
     Indication: NAUSEA
     Route: 041

REACTIONS (4)
  - ANOREXIA [None]
  - BRONCHOPULMONARY ASPERGILLOSIS [None]
  - HYPONATRAEMIA [None]
  - MALAISE [None]
